FAERS Safety Report 7602892-1 (Version None)
Quarter: 2011Q3

REPORT INFORMATION
  Report Type: 
  Country: None (occurrence: None)
  Receive Date: 20110711
  Receipt Date: 20110711
  Transmission Date: 20111222
  Serious: Yes (Other)
  Sender: FDA-Public Use
  Company Number: None

PATIENT
  Age: 32 Year
  Sex: Male
  Weight: 90 kg

DRUGS (1)
  1. PROPECIA [Suspect]
     Indication: ANDROGENETIC ALOPECIA
     Dosage: 1 MG DAILY PO
     Route: 048
     Dates: start: 20040101, end: 20080101

REACTIONS (5)
  - ERECTILE DYSFUNCTION [None]
  - PENIS DISORDER [None]
  - DEPRESSED MOOD [None]
  - SEXUAL DYSFUNCTION [None]
  - LOSS OF LIBIDO [None]
